FAERS Safety Report 8357295-1 (Version None)
Quarter: 2012Q2

REPORT INFORMATION
  Report Type: 
  Country: None (occurrence: None)
  Receive Date: 20120514
  Receipt Date: 20120510
  Transmission Date: 20120825
  Serious: Yes (Other)
  Sender: FDA-Public Use
  Company Number: PHEH2012US009886

PATIENT
  Sex: Male

DRUGS (2)
  1. CLOZARIL [Suspect]
  2. LUVOX [Concomitant]
     Dosage: 50 MG, DAILY

REACTIONS (3)
  - PROSTATIC DISORDER [None]
  - POLLAKIURIA [None]
  - SEDATION [None]
